FAERS Safety Report 4728527-3 (Version None)
Quarter: 2005Q3

REPORT INFORMATION
  Report Type: 
  Country: None (occurrence: None)
  Receive Date: 20050729
  Receipt Date: 20050504
  Transmission Date: 20060218
  Serious: No
  Sender: FDA-Public Use
  Company Number: US-GLAXOSMITHKLINE-A0557272A

PATIENT
  Sex: Male

DRUGS (2)
  1. ZANTAC [Suspect]
     Indication: DRUG USE FOR UNKNOWN INDICATION
     Dosage: 150MG UNKNOWN
     Route: 065
  2. NO CONCURRENT MEDICATION [Concomitant]

REACTIONS (2)
  - BOWEL SOUNDS ABNORMAL [None]
  - DIARRHOEA [None]
